FAERS Safety Report 5541211-1 (Version None)
Quarter: 2007Q4

REPORT INFORMATION
  Report Type: 
  Country: None (occurrence: None)
  Receive Date: 20071209
  Receipt Date: 20061220
  Transmission Date: 20080405
  Serious: No
  Sender: FDA-Public Use
  Company Number: US-AMGEN-KDL204385

PATIENT
  Sex: Female

DRUGS (1)
  1. ENBREL [Suspect]
     Indication: RHEUMATOID ARTHRITIS
     Route: 058
     Dates: start: 20040701

REACTIONS (5)
  - ASTHENIA [None]
  - DIARRHOEA [None]
  - FATIGUE [None]
  - TINNITUS [None]
  - URINARY TRACT INFECTION BACTERIAL [None]
